FAERS Safety Report 19189780 (Version 1)
Quarter: 2021Q2

REPORT INFORMATION
  Report Type: Spontaneous
  Country: EG (occurrence: EG)
  Receive Date: 20210428
  Receipt Date: 20210428
  Transmission Date: 20210717
  Serious: Yes (Other)
  Sender: FDA-Public Use
  Company Number: NVSC2021EG091637

PATIENT
  Age: 67 Year
  Sex: Female
  Weight: 70 kg

DRUGS (2)
  1. OXALIPLATIN ^EBEWE^ [Suspect]
     Active Substance: OXALIPLATIN
     Indication: COLON CANCER
     Dosage: 237.9 MG (XELOX IV)
     Route: 042
  2. OXALIPLATIN ^EBEWE^ [Interacting]
     Active Substance: OXALIPLATIN
     Dosage: 237.9 MG (XELOX IV)
     Route: 042

REACTIONS (3)
  - Drug interaction [Unknown]
  - Hypersensitivity [Unknown]
  - Respiratory failure [Recovered/Resolved]

NARRATIVE: CASE EVENT DATE: 20210316
